FAERS Safety Report 9384191 (Version 1)
Quarter: 2013Q3

REPORT INFORMATION
  Report Type: Spontaneous
  Country: US (occurrence: None)
  Receive Date: 20130702
  Receipt Date: 20130702
  Transmission Date: 20140515
  Serious: Yes (Other)
  Sender: FDA-Public Use
  Company Number: None

PATIENT
  Age: 32 Year
  Sex: Male

DRUGS (1)
  1. DILTIAZEM [Suspect]
     Indication: SUPRAVENTRICULAR TACHYCARDIA
     Dosage: 20MG I.V.P
     Dates: start: 20130613

REACTIONS (4)
  - Chest discomfort [None]
  - Syncope [None]
  - Eye movement disorder [None]
  - Nodal rhythm [None]
